FAERS Safety Report 7233113-X (Version None)
Quarter: 2011Q1

REPORT INFORMATION
  Report Type: 
  Country: None (occurrence: None)
  Receive Date: 20110107
  Receipt Date: 20101231
  Transmission Date: 20110831
  Serious: Yes (Life-Threatening, Hospitalization)
  Sender: FDA-Public Use
  Company Number: 024696

PATIENT
  Sex: Male

DRUGS (2)
  1. XYZAL [Suspect]
     Dosage: ONE UNIT ORAL
     Route: 048
     Dates: start: 20101210, end: 20101210
  2. DOLIPRANE (DOLIPRANE) [Suspect]
     Dosage: 1 G ORAL
     Route: 048
     Dates: start: 20101210, end: 20101210

REACTIONS (3)
  - ANAPHYLACTIC SHOCK [None]
  - LOSS OF CONSCIOUSNESS [None]
  - HYPOTHERMIA [None]
